FAERS Safety Report 12442649 (Version 1)
Quarter: 2016Q2

REPORT INFORMATION
  Report Type: Report from Study
  Country: CA (occurrence: CA)
  Receive Date: 20160607
  Receipt Date: 20160607
  Transmission Date: 20160815
  Serious: Yes (Other)
  Sender: FDA-Public Use
  Company Number: CA-009507513-1606CAN001850

PATIENT
  Sex: Male

DRUGS (1)
  1. POSANOL [Suspect]
     Active Substance: POSACONAZOLE
     Dosage: 300 MG, QD
     Route: 065

REACTIONS (1)
  - Graft versus host disease in liver [Unknown]
